FAERS Safety Report 11628885 (Version 1)
Quarter: 2015Q4

REPORT INFORMATION
  Report Type: Spontaneous
  Country: US (occurrence: None)
  Receive Date: 20151013
  Receipt Date: 20151013
  Transmission Date: 20160304
  Serious: Yes (Hospitalization)
  Sender: FDA-Public Use
  Company Number: None

PATIENT
  Age: 70 Year
  Sex: Male
  Weight: 73.7 kg

DRUGS (1)
  1. LINAGLIPTIN [Suspect]
     Active Substance: LINAGLIPTIN
     Indication: DIABETES MELLITUS
     Route: 048
     Dates: start: 20141104, end: 20150704

REACTIONS (10)
  - Sepsis [None]
  - Nausea [None]
  - Pancreatitis acute [None]
  - Nephrolithiasis [None]
  - White blood cell count increased [None]
  - Pyrexia [None]
  - Feeling abnormal [None]
  - Vomiting [None]
  - Calculus ureteric [None]
  - Dizziness [None]

NARRATIVE: CASE EVENT DATE: 20150704
